FAERS Safety Report 4790494-4 (Version None)
Quarter: 2005Q4

REPORT INFORMATION
  Report Type: 
  Country: None (occurrence: None)
  Receive Date: 20051005
  Receipt Date: 19981111
  Transmission Date: 20060501
  Serious: Yes (Death, Hospitalization)
  Sender: FDA-Public Use
  Company Number: 8-98310-005X

PATIENT
  Age: 24 Year
  Sex: Female

DRUGS (2)
  1. MYLOTARG [Suspect]
     Indication: ACUTE MYELOID LEUKAEMIA
     Dosage: 9 MG/M (2), INTRAVENOUS
     Route: 042
     Dates: start: 19981021, end: 19981021
  2. ABELCET (AMPHOTERICINA B LIPP COMPLEX, INJECTION) [Suspect]
     Dosage: DOSE UNKNOWN, INJECTION
     Dates: start: 19980101

REACTIONS (25)
  - ABDOMINAL DISTENSION [None]
  - ALANINE AMINOTRANSFERASE INCREASED [None]
  - ASCITES [None]
  - ASPARTATE AMINOTRANSFERASE INCREASED [None]
  - BLOOD BILIRUBIN INCREASED [None]
  - BLOOD CREATININE INCREASED [None]
  - CARDIAC OUTPUT DECREASED [None]
  - CHILLS [None]
  - CONFUSIONAL STATE [None]
  - DIALYSIS [None]
  - DIZZINESS [None]
  - HAEMOGLOBIN DECREASED [None]
  - HYPOTENSION [None]
  - ISCHAEMIC HEPATITIS [None]
  - LUNG CONSOLIDATION [None]
  - MULTI-ORGAN FAILURE [None]
  - NEUTROPHIL COUNT DECREASED [None]
  - POST PROCEDURAL COMPLICATION [None]
  - PUPILLARY REFLEX IMPAIRED [None]
  - PUPILS UNEQUAL [None]
  - PYREXIA [None]
  - RENAL FUNCTION TEST ABNORMAL [None]
  - RETROPERITONEAL HAEMORRHAGE [None]
  - THROMBOCYTOPENIA [None]
  - WHITE BLOOD CELL COUNT DECREASED [None]
